FAERS Safety Report 4819299-2 (Version None)
Quarter: 2005Q4

REPORT INFORMATION
  Report Type: 
  Country: None (occurrence: None)
  Receive Date: 20051103
  Receipt Date: 20051019
  Transmission Date: 20060501
  Serious: Yes (Death, Hospitalization)
  Sender: FDA-Public Use
  Company Number: BR-ROCHE-422039

PATIENT
  Sex: Female

DRUGS (2)
  1. XELODA [Suspect]
     Route: 048
     Dates: start: 20050615, end: 20051011
  2. CLAVULIN [Concomitant]
     Indication: GINGIVAL INFECTION
     Route: 048
     Dates: start: 20050115, end: 20051010

REACTIONS (12)
  - ANURIA [None]
  - ASTHENIA [None]
  - BLOOD PRESSURE DECREASED [None]
  - CARDIAC FAILURE [None]
  - DEHYDRATION [None]
  - DIARRHOEA [None]
  - DIZZINESS [None]
  - HYPOAESTHESIA [None]
  - NAUSEA [None]
  - SKIN ATROPHY [None]
  - THIRST [None]
  - VOMITING [None]
